FAERS Safety Report 7380529-7 (Version None)
Quarter: 2011Q1

REPORT INFORMATION
  Report Type: 
  Country: None (occurrence: None)
  Receive Date: 20110329
  Receipt Date: 20110324
  Transmission Date: 20110831
  Serious: Yes (Other)
  Sender: FDA-Public Use
  Company Number: IE-PFIZER INC-2011030977

PATIENT
  Age: 40 Year
  Sex: Female

DRUGS (2)
  1. NEURONTIN [Suspect]
     Indication: NECK PAIN
     Dosage: UNK
     Dates: start: 20100101, end: 20100301
  2. NEURONTIN [Suspect]
     Indication: NEURALGIA

REACTIONS (4)
  - JOINT SWELLING [None]
  - GALACTORRHOEA [None]
  - ASTHMA [None]
  - BRONCHIAL DISORDER [None]
